FAERS Safety Report 12310934 (Version 1)
Quarter: 2016Q2

REPORT INFORMATION
  Report Type: Spontaneous
  Country: US (occurrence: US)
  Receive Date: 20160427
  Receipt Date: 20160427
  Transmission Date: 20160815
  Serious: Yes (Other)
  Sender: FDA-Public Use
  Company Number: US-BRISTOL-MYERS SQUIBB COMPANY-BMS-2016-030553

PATIENT
  Sex: Male

DRUGS (1)
  1. YERVOY [Suspect]
     Active Substance: IPILIMUMAB
     Indication: PRODUCT USED FOR UNKNOWN INDICATION
     Dosage: UNK
     Route: 042
     Dates: start: 2013, end: 20160404

REACTIONS (8)
  - Abdominal pain [Unknown]
  - Visual impairment [Unknown]
  - Spleen disorder [Unknown]
  - Diarrhoea [Unknown]
  - Pituitary enlargement [Unknown]
  - Hepatic enzyme abnormal [Unknown]
  - Thyroid disorder [Unknown]
  - Headache [Unknown]
